FAERS Safety Report 13817478 (Version 1)
Quarter: 2017Q3

REPORT INFORMATION
  Report Type: Other
  Country: US (occurrence: US)
  Receive Date: 20170731
  Receipt Date: 20170731
  Transmission Date: 20171127
  Serious: Yes (Life-Threatening)
  Sender: FDA-Public Use
  Company Number: US-ACTELION-A-CH2017-157181

PATIENT
  Age: 46 Year
  Sex: Male

DRUGS (7)
  1. TREPROSTINIL [Suspect]
     Active Substance: TREPROSTINIL
     Indication: PULMONARY ARTERIAL HYPERTENSION
     Dosage: UNK
     Route: 058
  2. TREPROSTINIL [Suspect]
     Active Substance: TREPROSTINIL
     Dosage: 61 NG/KG, PER MIN
     Route: 058
     Dates: start: 200304
  3. BOSENTAN. [Suspect]
     Active Substance: BOSENTAN
     Indication: PULMONARY ARTERIAL HYPERTENSION
     Dosage: 125 MG, BID
     Route: 048
     Dates: start: 200801
  4. TREPROSTINIL [Suspect]
     Active Substance: TREPROSTINIL
     Dosage: 6 PUFF, Q6HRS
     Route: 055
  5. SILDENAFIL. [Concomitant]
     Active Substance: SILDENAFIL
     Dosage: 20 MG, TID
     Dates: start: 200607
  6. TREPROSTINIL [Suspect]
     Active Substance: TREPROSTINIL
     Dosage: 9 PUFF, Q6HRS
     Route: 055
  7. TREPROSTINIL [Suspect]
     Active Substance: TREPROSTINIL
     Dosage: 3 PUFF, Q6HRS
     Route: 055
     Dates: start: 201004

REACTIONS (3)
  - Subcutaneous abscess [Unknown]
  - Bacteraemia [Unknown]
  - Infusion site pain [Unknown]
